FAERS Safety Report 13258024 (Version 2)
Quarter: 2017Q1

REPORT INFORMATION
  Report Type: Spontaneous
  Country: TR (occurrence: TR)
  Receive Date: 20170221
  Receipt Date: 20170315
  Transmission Date: 20170428
  Serious: Yes (Hospitalization, Other)
  Sender: FDA-Public Use
  Company Number: TR-GILEAD-2017-0258856

PATIENT
  Age: 57 Year
  Sex: Female
  Weight: 75 kg

DRUGS (4)
  1. GLIFOR [Concomitant]
     Active Substance: METFORMIN HYDROCHLORIDE
     Dosage: 1000 MG, UNK
  2. HARVONI [Suspect]
     Active Substance: LEDIPASVIR\SOFOSBUVIR
     Indication: HEPATIC CIRRHOSIS
  3. NOVOMIX [Concomitant]
     Active Substance: INSULIN ASPART
     Route: 058
  4. HARVONI [Suspect]
     Active Substance: LEDIPASVIR\SOFOSBUVIR
     Indication: CHRONIC HEPATITIS C
     Dosage: 1 DF, UNK
     Route: 048
     Dates: start: 20160727, end: 20170102

REACTIONS (6)
  - Abdominal distension [Recovered/Resolved]
  - Ascites [Recovered/Resolved]
  - Pain [Recovered/Resolved]
  - Hepatic cirrhosis [Recovered/Resolved]
  - Oesophageal haemorrhage [Recovered/Resolved]
  - Hepatic failure [Recovered/Resolved]

NARRATIVE: CASE EVENT DATE: 20161210
